FAERS Safety Report 9282604 (Version 1)
Quarter: 2013Q2

REPORT INFORMATION
  Report Type: Spontaneous
  Country: US (occurrence: US)
  Receive Date: 20130510
  Receipt Date: 20130510
  Transmission Date: 20140414
  Serious: Yes (Hospitalization)
  Sender: FDA-Public Use
  Company Number: CHPA2013US007759

PATIENT
  Sex: Female

DRUGS (2)
  1. EXCEDRIN MIGRAINE [Suspect]
     Indication: HEADACHE
     Dosage: UNK, UNK
     Route: 065
  2. EXCEDRIN MIGRAINE [Suspect]
     Indication: MIGRAINE

REACTIONS (3)
  - Thrombosis [Unknown]
  - Off label use [Unknown]
  - Therapeutic response unexpected [Unknown]
